FAERS Safety Report 23994439 (Version 2)
Quarter: 2024Q3

REPORT INFORMATION
  Report Type: Spontaneous
  Country: US (occurrence: US)
  Receive Date: 20240620
  Receipt Date: 20240801
  Transmission Date: 20241017
  Serious: Yes (Hospitalization, Other)
  Sender: MERCK
  Company Number: US-009507513-2406USA004289

PATIENT
  Sex: Female

DRUGS (6)
  1. WINREVAIR [Suspect]
     Active Substance: SOTATERCEPT-CSRK
     Indication: Product used for unknown indication
  2. REMODULIN [Suspect]
     Active Substance: TREPROSTINIL
     Indication: Pulmonary arterial hypertension
     Dosage: 0.1296 UG/KG, CONTINUOUS
     Route: 042
     Dates: start: 202308
  3. REMODULIN [Suspect]
     Active Substance: TREPROSTINIL
     Dosage: 0.137 UG/KG, CONTINUOUS
     Route: 042
  4. GLEEVEC [Concomitant]
     Active Substance: IMATINIB MESYLATE
  5. OPSUMIT [Concomitant]
     Active Substance: MACITENTAN
  6. ADCIRCA [Concomitant]
     Active Substance: TADALAFIL

REACTIONS (5)
  - Pulmonary arterial hypertension [Unknown]
  - Adverse event [Unknown]
  - Upper respiratory tract infection [Recovering/Resolving]
  - Headache [Not Recovered/Not Resolved]
  - Dizziness [Unknown]

NARRATIVE: CASE EVENT DATE: 20240101
